FAERS Safety Report 6257802-9 (Version None)
Quarter: 2009Q3

REPORT INFORMATION
  Report Type: 
  Country: None (occurrence: None)
  Receive Date: 20090706
  Receipt Date: 20090621
  Transmission Date: 20100115
  Serious: Yes (Death, Hospitalization)
  Sender: FDA-Public Use
  Company Number: SE-GENENTECH-285204

PATIENT
  Age: 81 Year
  Sex: Female

DRUGS (17)
  1. MABTHERA [Suspect]
     Indication: RHEUMATOID ARTHRITIS
     Dosage: 1000 MG, UNK
     Route: 065
     Dates: start: 20080522, end: 20080522
  2. PREDNISOLONE [Concomitant]
     Indication: DRUG USE FOR UNKNOWN INDICATION
  3. IMUREL [Concomitant]
     Indication: DRUG USE FOR UNKNOWN INDICATION
  4. CALCICHEW D3 [Concomitant]
     Indication: DRUG USE FOR UNKNOWN INDICATION
  5. IMDUR [Concomitant]
     Indication: DRUG USE FOR UNKNOWN INDICATION
  6. ALVEDON [Concomitant]
     Indication: DRUG USE FOR UNKNOWN INDICATION
  7. KALEORID [Concomitant]
     Indication: DRUG USE FOR UNKNOWN INDICATION
  8. WARFARIN SODIUM [Concomitant]
     Indication: DRUG USE FOR UNKNOWN INDICATION
  9. LASIX [Concomitant]
     Indication: DRUG USE FOR UNKNOWN INDICATION
  10. SPIRONOLACTONE [Concomitant]
     Indication: DRUG USE FOR UNKNOWN INDICATION
  11. ISOPTIN [Concomitant]
     Indication: DRUG USE FOR UNKNOWN INDICATION
  12. COZAAR [Concomitant]
     Indication: DRUG USE FOR UNKNOWN INDICATION
  13. SYMBICORT [Concomitant]
     Indication: DRUG USE FOR UNKNOWN INDICATION
  14. ALENDRONIC ACID [Concomitant]
     Indication: DRUG USE FOR UNKNOWN INDICATION
  15. LANSOPRAZOLE [Concomitant]
     Indication: DRUG USE FOR UNKNOWN INDICATION
  16. ZOPICLONE [Concomitant]
     Indication: DRUG USE FOR UNKNOWN INDICATION
  17. CETIRIZINE [Concomitant]
     Indication: DRUG USE FOR UNKNOWN INDICATION

REACTIONS (26)
  - ANAEMIA [None]
  - ATRIAL FIBRILLATION [None]
  - B-CELL LYMPHOMA [None]
  - BLOOD CREATINE PHOSPHOKINASE ABNORMAL [None]
  - BRONCHIOLITIS [None]
  - CARDIAC FAILURE [None]
  - COLITIS [None]
  - DEHYDRATION [None]
  - DEPRESSED LEVEL OF CONSCIOUSNESS [None]
  - DIARRHOEA [None]
  - DIARRHOEA HAEMORRHAGIC [None]
  - DIVERTICULITIS [None]
  - DYSPNOEA [None]
  - ESCHERICHIA BACTERAEMIA [None]
  - ESCHERICHIA INFECTION [None]
  - FATIGUE [None]
  - GENERAL PHYSICAL HEALTH DETERIORATION [None]
  - HAEMATOMA [None]
  - HEPATIC FAILURE [None]
  - LEUKOPENIA [None]
  - NEUTROPENIA [None]
  - PNEUMONIA [None]
  - RENAL FAILURE [None]
  - SIGMOIDITIS [None]
  - SPLENOMEGALY [None]
  - THROMBOCYTOPENIA [None]
